FAERS Safety Report 6004498-7 (Version None)
Quarter: 2008Q4

REPORT INFORMATION
  Report Type: 
  Country: None (occurrence: None)
  Receive Date: 20081216
  Receipt Date: 20081205
  Transmission Date: 20090506
  Serious: Yes (Hospitalization, Other)
  Sender: FDA-Public Use
  Company Number: CL-AMGEN-US319417

PATIENT
  Sex: Female

DRUGS (5)
  1. PANITUMUMAB - OBSERVATION/NO DRUG [Suspect]
     Indication: COLORECTAL CANCER
  2. OXALIPLATIN [Suspect]
  3. METFORMIN HCL [Concomitant]
     Dates: start: 20081110, end: 20081118
  4. FLUOXETINE [Concomitant]
     Dates: start: 20081110, end: 20081118
  5. ATORVASTATIN [Concomitant]
     Dates: start: 20081110, end: 20081118

REACTIONS (1)
  - INFUSION SITE EXTRAVASATION [None]
